FAERS Safety Report 18935111 (Version 1)
Quarter: 2021Q1

REPORT INFORMATION
  Report Type: Spontaneous
  Country: US (occurrence: US)
  Receive Date: 20210224
  Receipt Date: 20210224
  Transmission Date: 20210420
  Serious: No
  Sender: FDA-Public Use
  Company Number: US-UNITED THERAPEUTICS-UNT-2020-017830

PATIENT
  Sex: Female
  Weight: 83.9 kg

DRUGS (5)
  1. TYVASO [Suspect]
     Active Substance: TREPROSTINIL
     Indication: PULMONARY ARTERIAL HYPERTENSION
     Dosage: UNK
     Dates: start: 20201130
  2. TYVASO [Suspect]
     Active Substance: TREPROSTINIL
     Dosage: 18?54 ?G, QID
  3. OPSUMIT [Suspect]
     Active Substance: MACITENTAN
     Indication: PULMONARY ARTERIAL HYPERTENSION
     Dosage: 10 MG, QD (1 TABLET IN 1 DAY)
     Route: 048
  4. TYVASO [Suspect]
     Active Substance: TREPROSTINIL
     Dosage: UNK
  5. TYVASO [Suspect]
     Active Substance: TREPROSTINIL
     Dosage: 42 ?G

REACTIONS (7)
  - Nausea [Unknown]
  - Dyspnoea [Unknown]
  - Pain in extremity [Unknown]
  - Temperature intolerance [Unknown]
  - Intentional product use issue [Unknown]
  - Cough [Unknown]
  - Oedema peripheral [Unknown]
